FAERS Safety Report 23507894 (Version 1)
Quarter: 2024Q1

REPORT INFORMATION
  Report Type: Spontaneous
  Country: US (occurrence: US)
  Receive Date: 20240209
  Receipt Date: 20240209
  Transmission Date: 20240410
  Serious: Yes (Other)
  Sender: FDA-Public Use
  Company Number: US-UPSHER-SMITH LABORATORIES, LLC-2024USL00128

PATIENT
  Age: 0 Year
  Sex: Male

DRUGS (3)
  1. VIGADRONE [Suspect]
     Active Substance: VIGABATRIN
     Indication: Infantile spasms
     Dosage: INITIAL DOSE OF 50 MG/KG/DAY WITH TITRATION UP TO MAINTENANCE 150 MG/KG/DAY
     Route: 048
     Dates: start: 20240120, end: 20240126
  2. VIGADRONE [Suspect]
     Active Substance: VIGABATRIN
     Dosage: 550 MG (11 ML) BY MOUTH TWICE DAILY AS DIRECTED
     Route: 048
     Dates: start: 20240126, end: 202402
  3. VIGADRONE [Suspect]
     Active Substance: VIGABATRIN
     Dosage: DOSE INCREASED
     Route: 048
     Dates: start: 202402

REACTIONS (3)
  - Infantile spasms [Unknown]
  - Insomnia [Recovered/Resolved]
  - Fatigue [Unknown]

NARRATIVE: CASE EVENT DATE: 20240127
